FAERS Safety Report 4627053-X (Version None)
Quarter: 2005Q1

REPORT INFORMATION
  Report Type: 
  Country: None (occurrence: None)
  Receive Date: 20050331
  Receipt Date: 20050311
  Transmission Date: 20050727
  Serious: Yes (Hospitalization, Other)
  Sender: FDA-Public Use
  Company Number: 2005044601

PATIENT
  Sex: Female

DRUGS (1)
  1. CELEBREX [Suspect]
     Indication: ILL-DEFINED DISORDER
     Dates: start: 20000601, end: 20001101

REACTIONS (4)
  - COMA [None]
  - FEELING ABNORMAL [None]
  - GASTRIC OPERATION [None]
  - HAEMATEMESIS [None]
